FAERS Safety Report 6899170-5 (Version None)
Quarter: 2010Q3

REPORT INFORMATION
  Report Type: 
  Country: None (occurrence: None)
  Receive Date: 20100802
  Receipt Date: 20080223
  Transmission Date: 20110219
  Serious: Yes (Other)
  Sender: FDA-Public Use
  Company Number: US-PFIZER INC-2008002203

PATIENT
  Sex: Female
  Weight: 58.1 kg

DRUGS (5)
  1. LYRICA [Suspect]
     Indication: DIABETIC NEUROPATHY
     Route: 048
  2. ZOCOR [Concomitant]
  3. ENALAPRIL MALEATE [Concomitant]
  4. NOVOLOG [Concomitant]
  5. VITAMINS [Concomitant]

REACTIONS (4)
  - BLOOD GLUCOSE DECREASED [None]
  - FATIGUE [None]
  - PAIN [None]
  - WEIGHT INCREASED [None]
